FAERS Safety Report 21617106 (Version 2)
Quarter: 2022Q4

REPORT INFORMATION
  Report Type: Spontaneous
  Country: US (occurrence: US)
  Receive Date: 20221118
  Receipt Date: 20221202
  Transmission Date: 20230113
  Serious: No
  Sender: FDA-Public Use
  Company Number: US-009507513-2210USA007587

PATIENT
  Age: 66 Year
  Sex: Male
  Weight: 130.16 kg

DRUGS (2)
  1. JANUVIA [Suspect]
     Active Substance: SITAGLIPTIN PHOSPHATE
     Indication: Diabetes mellitus
     Dosage: 100 MILLIGRAM, QD
     Route: 048
     Dates: start: 20140209, end: 20220901
  2. JANUVIA [Suspect]
     Active Substance: SITAGLIPTIN PHOSPHATE
     Dosage: 100 MILLIGRAM, QD
     Route: 048
     Dates: start: 202211

REACTIONS (16)
  - Blood glucose abnormal [Unknown]
  - Glycosylated haemoglobin increased [Not Recovered/Not Resolved]
  - Calcium ionised increased [Recovered/Resolved]
  - Blood sodium increased [Recovered/Resolved]
  - Blood potassium increased [Recovered/Resolved]
  - Blood chloride increased [Recovered/Resolved]
  - Blood urea increased [Not Recovered/Not Resolved]
  - Blood glucose increased [Unknown]
  - Blood glucose increased [Unknown]
  - Blood creatinine increased [Recovered/Resolved]
  - Blood glucose decreased [Recovered/Resolved]
  - Blood creatinine increased [Unknown]
  - Glomerular filtration rate decreased [Unknown]
  - Glomerular filtration rate decreased [Recovered/Resolved]
  - Glomerular filtration rate decreased [Unknown]
  - Product dose omission in error [Unknown]

NARRATIVE: CASE EVENT DATE: 20211209
